FAERS Safety Report 24406528 (Version 1)
Quarter: 2024Q4

REPORT INFORMATION
  Report Type: Spontaneous
  Country: JP (occurrence: JP)
  Receive Date: 20241007
  Receipt Date: 20241007
  Transmission Date: 20250115
  Serious: Yes (Other)
  Sender: ALEXION PHARMACEUTICALS
  Company Number: JP-ASTRAZENECA-202409GLO010818JP

PATIENT

DRUGS (1)
  1. QUETIAPINE FUMARATE [Suspect]
     Active Substance: QUETIAPINE FUMARATE
     Dosage: UNK

REACTIONS (4)
  - Renal failure [Unknown]
  - Dyskinesia [Unknown]
  - Decreased appetite [Unknown]
  - Tremor [Unknown]
